FAERS Safety Report 13026351 (Version 1)
Quarter: 2016Q4

REPORT INFORMATION
  Report Type: Spontaneous
  Country: US (occurrence: US)
  Receive Date: 20161214
  Receipt Date: 20161214
  Transmission Date: 20170207
  Serious: No
  Sender: FDA-Public Use
  Company Number: US-BAYER-2016-237070

PATIENT
  Age: 83 Year
  Sex: Male
  Weight: 83.9 kg

DRUGS (3)
  1. LINZESS [Concomitant]
     Active Substance: LINACLOTIDE
  2. MIRALAX [Suspect]
     Active Substance: POLYETHYLENE GLYCOL 3350
     Indication: GASTROINTESTINAL DISORDER
     Dosage: 1 DF, ONCE
     Dates: start: 201610, end: 201610
  3. ONE A DAY ESSENTIAL [Concomitant]
     Active Substance: VITAMINS

REACTIONS (1)
  - Drug ineffective [Unknown]

NARRATIVE: CASE EVENT DATE: 201610
